FAERS Safety Report 4566635-0 (Version None)
Quarter: 2005Q1

REPORT INFORMATION
  Report Type: 
  Country: None (occurrence: None)
  Receive Date: 20050126
  Receipt Date: 20050112
  Transmission Date: 20050727
  Serious: Yes (Hospitalization)
  Sender: FDA-Public Use
  Company Number: F03200500001

PATIENT
  Age: 53 Year
  Sex: Female

DRUGS (7)
  1. ELOXATIN [Suspect]
     Indication: BILE DUCT CANCER
     Dosage: 100 MG/M2 OTHER - INTRAVENOUS NOS
     Route: 042
     Dates: start: 20041228, end: 20041228
  2. XELODA [Suspect]
     Indication: BILE DUCT CANCER
     Dosage: ORAL
     Route: 048
     Dates: start: 20041228
  3. FENTANYL [Concomitant]
  4. HYDROMORPHONE HYDROCHLORIDE [Concomitant]
  5. ESCITALOPRAM [Concomitant]
  6. RANITIDINE HYDROCHLORIDE [Concomitant]
  7. SENNA FRUIT [Concomitant]

REACTIONS (5)
  - CONVULSION [None]
  - LOSS OF CONSCIOUSNESS [None]
  - METASTASES TO CENTRAL NERVOUS SYSTEM [None]
  - NAUSEA [None]
  - VOMITING [None]
